FAERS Safety Report 24271250 (Version 1)
Quarter: 2024Q3

REPORT INFORMATION
  Report Type: Spontaneous
  Country: US (occurrence: None)
  Receive Date: 20240901
  Receipt Date: 20240901
  Transmission Date: 20241016
  Serious: No
  Sender: ASTRAZENECA
  Company Number: 2024A183341

PATIENT
  Sex: Female

DRUGS (2)
  1. BUDESONIDE\FORMOTEROL [Suspect]
     Active Substance: BUDESONIDE\FORMOTEROL
     Dosage: 160 UG UNKNOWN UNKNOWN
     Route: 055
  2. SYMBICORT [Suspect]
     Active Substance: BUDESONIDE\FORMOTEROL FUMARATE DIHYDRATE
     Dosage: 160 UG UNKNOWN UNKNOWN
     Route: 055

REACTIONS (3)
  - Oral candidiasis [Unknown]
  - Inability to afford medication [Unknown]
  - Intentional dose omission [Unknown]
